FAERS Safety Report 7348250-9 (Version None)
Quarter: 2011Q1

REPORT INFORMATION
  Report Type: 
  Country: None (occurrence: None)
  Receive Date: 20110311
  Receipt Date: 20110302
  Transmission Date: 20110831
  Serious: Yes (Hospitalization)
  Sender: FDA-Public Use
  Company Number: US-NOVOPROD-323932

PATIENT
  Sex: Male

DRUGS (2)
  1. ANTIBIOTICS [Concomitant]
     Indication: PYREXIA
  2. ACTRAPID [Suspect]
     Indication: OFF LABEL USE

REACTIONS (8)
  - CARDIAC FAILURE [None]
  - BRONCHOSPASM [None]
  - PYREXIA [None]
  - OFF LABEL USE [None]
  - DRUG HYPERSENSITIVITY [None]
  - DYSPNOEA [None]
  - RASH GENERALISED [None]
  - COMA [None]
